FAERS Safety Report 24160308 (Version 3)
Quarter: 2025Q3

REPORT INFORMATION
  Report Type: Report from Study
  Country: CA (occurrence: CA)
  Receive Date: 20240801
  Receipt Date: 20250919
  Transmission Date: 20251020
  Serious: Yes (Disabling, Other)
  Sender: CELLTRION
  Company Number: CA-CELLTRION INC.-2024CA018196

PATIENT

DRUGS (11)
  1. ADALIMUMAB-AATY [Suspect]
     Active Substance: ADALIMUMAB-AATY
     Indication: Ankylosing spondylitis
     Dosage: 40 MG, Q2WEEKS
     Route: 058
     Dates: start: 20240106
  2. ADALIMUMAB-AATY [Suspect]
     Active Substance: ADALIMUMAB-AATY
  3. METHOTREXATE [Concomitant]
     Active Substance: METHOTREXATE
     Dosage: 20 MG, 1/WEEK
     Dates: start: 202304
  4. LEFLUNOMIDE [Concomitant]
     Active Substance: LEFLUNOMIDE
     Dates: start: 202309
  5. CELEBREX [Concomitant]
     Active Substance: CELECOXIB
  6. VITAMIN C [Concomitant]
     Active Substance: ASCORBIC ACID
  7. VITAMIN D NOS [Concomitant]
     Active Substance: CHOLECALCIFEROL\ERGOCALCIFEROL
  8. FOLIC ACID [Concomitant]
     Active Substance: FOLIC ACID
  9. FOLIC ACID [Concomitant]
     Active Substance: FOLIC ACID
  10. VITAMIN B [Concomitant]
     Active Substance: VITAMIN B
  11. CIPROFLOXACIN HYDROCHLORIDE [Concomitant]
     Active Substance: CIPROFLOXACIN HYDROCHLORIDE

REACTIONS (6)
  - Condition aggravated [Unknown]
  - Hysterectomy [Unknown]
  - Obesity [Unknown]
  - Arthritis [Unknown]
  - Hepatic steatosis [Unknown]
  - Psoriasis [Unknown]
